FAERS Safety Report 5574510-8 (Version None)
Quarter: 2007Q4

REPORT INFORMATION
  Report Type: 
  Country: None (occurrence: None)
  Receive Date: 20071227
  Receipt Date: 20071214
  Transmission Date: 20080405
  Serious: Yes (Hospitalization)
  Sender: FDA-Public Use
  Company Number: JP-AMGEN-US257883

PATIENT
  Sex: Female

DRUGS (3)
  1. ENBREL [Suspect]
     Indication: RHEUMATOID ARTHRITIS
     Dosage: NOT SPECIFIED
     Route: 058
     Dates: start: 20050621, end: 20071030
  2. SULFASALAZINE [Concomitant]
     Dosage: NOT SPECIFIED
     Route: 048
  3. METHOTREXATE [Concomitant]
     Dosage: NOT SPECIFIED
     Route: 048

REACTIONS (2)
  - ECTHYMA [None]
  - PYODERMA GANGRENOSUM [None]
